FAERS Safety Report 8399107-6 (Version None)
Quarter: 2012Q2

REPORT INFORMATION
  Report Type: 
  Country: None (occurrence: None)
  Receive Date: 20120525
  Receipt Date: 20120517
  Transmission Date: 20120825
  Serious: Yes (Other)
  Sender: FDA-Public Use
  Company Number: ADR-2012-00907

PATIENT
  Sex: Male

DRUGS (4)
  1. BUPIVACAINE HCL [Concomitant]
  2. HYDROMORPHINE [Concomitant]
  3. BACLOFEN [Suspect]
     Indication: BACK PAIN
  4. BACLOFEN [Suspect]
     Indication: PAIN

REACTIONS (4)
  - CARDIAC DISORDER [None]
  - OVERDOSE [None]
  - RESPIRATORY DEPRESSION [None]
  - INCORRECT DOSE ADMINISTERED BY DEVICE [None]
